FAERS Safety Report 11087600 (Version 1)
Quarter: 2015Q2

REPORT INFORMATION
  Report Type: Spontaneous
  Country: US (occurrence: None)
  Receive Date: 20150501
  Receipt Date: 20150501
  Transmission Date: 20150821
  Serious: Yes (Other)
  Sender: FDA-Public Use
  Company Number: None

PATIENT
  Age: 40 Year
  Sex: Female
  Weight: 65.77 kg

DRUGS (15)
  1. CORISOPRODOL [Concomitant]
  2. MUSNEX [Concomitant]
  3. VIT. D, FOLIC ACID, VIT. B - COMPLEX [Concomitant]
     Active Substance: FOLIC ACID\VITAMINS
  4. LOTREL [Concomitant]
     Active Substance: AMLODIPINE BESYLATE\BENAZEPRIL HYDROCHLORIDE
  5. CETIRIZINE [Concomitant]
     Active Substance: CETIRIZINE HYDROCHLORIDE
  6. RANITIDINE [Concomitant]
     Active Substance: RANITIDINE\RANITIDINE HYDROCHLORIDE
  7. NUTRA CALM [Concomitant]
  8. CYMBALTA [Concomitant]
     Active Substance: DULOXETINE HYDROCHLORIDE
  9. XOLAIR [Suspect]
     Active Substance: OMALIZUMAB
     Indication: ASTHMA
     Dosage: 2 INJECTIONS EVERY 4 WEEKS, EVERY 4 WEEKS, INJECTED INTO ARM
     Dates: start: 20130305, end: 20140408
  10. VENTOLIN [Concomitant]
     Active Substance: ALBUTEROL SULFATE
  11. TRAMADOL [Concomitant]
     Active Substance: TRAMADOL
  12. LASIX [Concomitant]
     Active Substance: FUROSEMIDE
  13. ALBUTEROL SULFATE. [Concomitant]
     Active Substance: ALBUTEROL SULFATE
  14. BIOTEN [Concomitant]
  15. CALCIUM NATURE^S SUNSHINE- ALJ [Concomitant]

REACTIONS (5)
  - Rib fracture [None]
  - Skull fracture [None]
  - Lower limb fracture [None]
  - Pelvic fracture [None]
  - Foot fracture [None]

NARRATIVE: CASE EVENT DATE: 20140412
